FAERS Safety Report 8801113 (Version 2)
Quarter: 2012Q4

REPORT INFORMATION
  Report Type: 
  Country: US (occurrence: US)
  Receive Date: 20120921
  Receipt Date: 20121001
  Transmission Date: 20130627
  Serious: Yes (Hospitalization)
  Sender: FDA-Public Use
  Company Number: US-JNJFOC-20120904187

PATIENT
  Sex: Female
  Weight: 53.52 kg

DRUGS (7)
  1. SIMPONI [Suspect]
     Indication: RHEUMATOID ARTHRITIS
     Route: 058
  2. SIMPONI [Suspect]
     Indication: RHEUMATOID ARTHRITIS
     Route: 058
     Dates: start: 2010
  3. ARTHROTEC [Concomitant]
     Indication: PAIN
     Route: 048
  4. METHOTREXATE [Concomitant]
     Indication: RHEUMATOID ARTHRITIS
     Route: 065
  5. PERCOCET [Concomitant]
     Route: 048
  6. CARISOPRODOL [Concomitant]
     Indication: MUSCLE DISORDER
     Route: 048
  7. ZANTAC [Concomitant]
     Indication: GASTRIC DISORDER
     Route: 065
     Dates: end: 201206

REACTIONS (10)
  - Shoulder arthroplasty [Unknown]
  - Gastric disorder [Not Recovered/Not Resolved]
  - Scar [Not Recovered/Not Resolved]
  - Pain [Not Recovered/Not Resolved]
  - Joint lock [Recovered/Resolved]
  - Injection site reaction [Recovered/Resolved]
  - Device leakage [Recovered/Resolved]
  - Device malfunction [Unknown]
  - Drug dose omission [Not Recovered/Not Resolved]
  - Joint swelling [Not Recovered/Not Resolved]
